FAERS Safety Report 11267680 (Version 8)
Quarter: 2015Q4

REPORT INFORMATION
  Report Type: Spontaneous
  Country: US (occurrence: US)
  Receive Date: 20150713
  Receipt Date: 20151001
  Transmission Date: 20160304
  Serious: Yes (Hospitalization)
  Sender: FDA-Public Use
  Company Number: US-ACTELION-A-NJ2015-120691

PATIENT
  Age: 62 Year
  Sex: Female

DRUGS (3)
  1. REVATIO [Concomitant]
     Active Substance: SILDENAFIL CITRATE
  2. REMODULIN [Concomitant]
     Active Substance: TREPROSTINIL
  3. OPSUMIT [Suspect]
     Active Substance: MACITENTAN
     Indication: PULMONARY HYPERTENSION
     Dosage: 10 MG, QD
     Route: 048
     Dates: start: 20150121

REACTIONS (13)
  - Pain in extremity [Unknown]
  - Gastric disorder [Unknown]
  - Medical device complication [Unknown]
  - Device occlusion [Unknown]
  - Back pain [Unknown]
  - Device dislocation [Unknown]
  - Diarrhoea [Unknown]
  - Catheter placement [Unknown]
  - Blood glucose decreased [Unknown]
  - Abdominal pain [Unknown]
  - Clostridium difficile infection [Unknown]
  - Blood pressure decreased [Unknown]
  - Spinal compression fracture [Unknown]
